FAERS Safety Report 11108592 (Version 1)
Quarter: 2015Q2

REPORT INFORMATION
  Report Type: Spontaneous
  Country: US (occurrence: US)
  Receive Date: 20150513
  Receipt Date: 20150513
  Transmission Date: 20150821
  Serious: No
  Sender: FDA-Public Use
  Company Number: US-ASTRAZENECA-2015SE41973

PATIENT
  Age: 39 Year
  Sex: Female

DRUGS (2)
  1. ENTOCORT [Suspect]
     Active Substance: BUDESONIDE
     Route: 048
  2. HUMIRA [Suspect]
     Active Substance: ADALIMUMAB
     Dosage: UNK (40 MG,1 IN 2 WEEKS)
     Route: 058

REACTIONS (4)
  - Oropharyngeal pain [Unknown]
  - Sputum discoloured [Unknown]
  - Fatigue [Unknown]
  - Productive cough [Unknown]
